FAERS Safety Report 19442174 (Version 1)
Quarter: 2021Q2

REPORT INFORMATION
  Report Type: Spontaneous
  Country: US (occurrence: US)
  Receive Date: 20210617
  Receipt Date: 20210617
  Transmission Date: 20210717
  Serious: No
  Sender: FDA-Public Use
  Company Number: None

PATIENT
  Age: 81 Year
  Sex: Male
  Weight: 66.23 kg

DRUGS (12)
  1. PROVERA [Concomitant]
     Active Substance: MEDROXYPROGESTERONE ACETATE
  2. PROCHLORPERAZINE. [Concomitant]
     Active Substance: PROCHLORPERAZINE
  3. PREDNISONE. [Suspect]
     Active Substance: PREDNISONE
  4. ACETAMINOPHEN. [Concomitant]
     Active Substance: ACETAMINOPHEN
  5. VIVELLE?DOT [Concomitant]
     Active Substance: ESTRADIOL
  6. VITAMIN D2 [Concomitant]
     Active Substance: ERGOCALCIFEROL
  7. IMATINIB MESYLATE 100 MG TABLET [Suspect]
     Active Substance: IMATINIB MESYLATE
     Indication: GASTROINTESTINAL STROMAL TUMOUR
     Route: 048
     Dates: start: 20210611
  8. ACETAMINOPHEN CODEINE [Concomitant]
     Active Substance: ACETAMINOPHEN\CODEINE PHOSPHATE
  9. VITAMN B12 [Concomitant]
  10. CYCLOBENZAPRINE. [Concomitant]
     Active Substance: CYCLOBENZAPRINE
  11. MELOXICAM. [Concomitant]
     Active Substance: MELOXICAM
  12. VITAMIN D3 [Concomitant]
     Active Substance: CHOLECALCIFEROL

REACTIONS (3)
  - Hypotension [None]
  - Therapy cessation [None]
  - Atrial fibrillation [None]
